FAERS Safety Report 5725938-4 (Version None)
Quarter: 2008Q2

REPORT INFORMATION
  Report Type: 
  Country: None (occurrence: None)
  Receive Date: 20080502
  Receipt Date: 20080401
  Transmission Date: 20081010
  Serious: No
  Sender: FDA-Public Use
  Company Number: US-BAYER-200716125NA

PATIENT
  Age: 49 Year
  Sex: Female
  Weight: 55 kg

DRUGS (2)
  1. MIRENA [Suspect]
     Indication: CONTRACEPTION
     Route: 015
     Dates: start: 20071011, end: 20071031
  2. CYTOMEL [Concomitant]
     Indication: HYPOTHYROIDISM

REACTIONS (6)
  - CERVICAL CYST [None]
  - CERVIX DISORDER [None]
  - FEELING ABNORMAL [None]
  - PROCEDURAL PAIN [None]
  - UTERINE PAIN [None]
  - VULVOVAGINAL DISCOMFORT [None]
